FAERS Safety Report 14975349 (Version 1)
Quarter: 2018Q2

REPORT INFORMATION
  Report Type: Spontaneous
  Country: CA (occurrence: CA)
  Receive Date: 20180605
  Receipt Date: 20180605
  Transmission Date: 20180711
  Serious: Yes (Other)
  Sender: FDA-Public Use
  Company Number: CA-FERRINGPH-2018FE02787

PATIENT

DRUGS (2)
  1. PICO-SALAX [Suspect]
     Active Substance: ANHYDROUS CITRIC ACID\MAGNESIUM OXIDE\SODIUM PICOSULFATE
     Dosage: 2 SACHETS, 2 TIMES DAILY
     Route: 048
     Dates: start: 20180528
  2. PICO-SALAX [Suspect]
     Active Substance: ANHYDROUS CITRIC ACID\MAGNESIUM OXIDE\SODIUM PICOSULFATE
     Indication: BOWEL PREPARATION
     Dosage: 1 SACHET
     Route: 065
     Dates: start: 20180529

REACTIONS (8)
  - Dizziness [Recovered/Resolved]
  - Product use issue [Unknown]
  - Hypoglycaemia [Unknown]
  - Product prescribing issue [Recovered/Resolved]
  - Dysarthria [Recovered/Resolved]
  - Malaise [Unknown]
  - Tremor [Recovered/Resolved]
  - Off label use [Recovered/Resolved]

NARRATIVE: CASE EVENT DATE: 20180528
